FAERS Safety Report 9597014 (Version 1)
Quarter: 2013Q4

REPORT INFORMATION
  Report Type: Spontaneous
  Country: FR (occurrence: FR)
  Receive Date: 20131004
  Receipt Date: 20131004
  Transmission Date: 20140711
  Serious: Yes (Hospitalization)
  Sender: FDA-Public Use
  Company Number: FR-PFIZER INC-2013279234

PATIENT
  Age: 42 Year
  Sex: Female

DRUGS (7)
  1. SALAZOPYRINE [Suspect]
     Dosage: 2 G, 1X/DAY
     Route: 048
     Dates: start: 20130530, end: 20130724
  2. OFLOCET [Suspect]
     Indication: BRONCHITIS
     Dosage: 400 MG, 1X/DAY
     Route: 048
     Dates: start: 20130720, end: 20130723
  3. AUGMENTIN [Suspect]
     Indication: COUGH
     Dosage: UNK
     Route: 048
     Dates: start: 20130717, end: 20130723
  4. AUGMENTIN [Suspect]
     Indication: PRODUCTIVE COUGH
  5. CORTANCYL [Concomitant]
     Dosage: 5 MG, 1X/DAY
     Route: 048
     Dates: start: 20130530
  6. MICARDIS [Concomitant]
     Dosage: 40 MG, 1X/DAY
     Route: 048
     Dates: start: 20130604
  7. OSLIF BREEZHALER [Concomitant]
     Dosage: 150 UG, 1X/DAY
     Route: 055

REACTIONS (4)
  - Febrile neutropenia [Recovered/Resolved]
  - Inflammation [Recovered/Resolved]
  - Bronchitis [Unknown]
  - Diarrhoea [Unknown]
